FAERS Safety Report 9891535 (Version 1)
Quarter: 2014Q1

REPORT INFORMATION
  Report Type: Spontaneous
  Country: US (occurrence: US)
  Receive Date: 20140212
  Receipt Date: 20140212
  Transmission Date: 20141002
  Serious: No
  Sender: FDA-Public Use
  Company Number: US-BAYER-2014-016280

PATIENT
  Age: 42 Year
  Sex: Female

DRUGS (2)
  1. MIRENA [Suspect]
     Indication: MENORRHAGIA
     Dosage: 20 MCG/24HR, CONT
     Route: 015
     Dates: start: 20131017, end: 20140106
  2. MIRENA [Suspect]
     Indication: CONTRACEPTION

REACTIONS (3)
  - Pain [None]
  - Abdominal pain lower [None]
  - Device difficult to use [Recovered/Resolved]
